FAERS Safety Report 26112362 (Version 1)
Quarter: 2025Q4

REPORT INFORMATION
  Report Type: Spontaneous
  Country: JP (occurrence: JP)
  Receive Date: 20251202
  Receipt Date: 20251202
  Transmission Date: 20260118
  Serious: Yes (Life-Threatening)
  Sender: RECORDATI
  Company Number: JP-ORPHANEU-2025008605

PATIENT
  Sex: Female
  Weight: 0.871 kg

DRUGS (6)
  1. PASIREOTIDE [Suspect]
     Active Substance: PASIREOTIDE
     Indication: Pituitary-dependent Cushing^s syndrome
     Dosage: 10 MG EVERY 3 WEEKS
     Route: 064
  2. PASIREOTIDE [Suspect]
     Active Substance: PASIREOTIDE
     Dosage: 20 MG EVERY 4 WEEKS
     Route: 064
  3. OSILODROSTAT [Suspect]
     Active Substance: OSILODROSTAT
     Indication: Pituitary-dependent Cushing^s syndrome
     Dosage: 3 MG/DAY
     Route: 064
  4. METYRAPONE [Concomitant]
     Active Substance: METYRAPONE
     Indication: Product used for unknown indication
     Dosage: 1000 MG DAILY
     Route: 064
  5. HYDROCORTISONE [Concomitant]
     Active Substance: HYDROCORTISONE
     Indication: Product used for unknown indication
     Dosage: 10 MG/DAY
     Route: 064
  6. HYDROCORTISONE [Concomitant]
     Active Substance: HYDROCORTISONE
     Dosage: UNK (GIVEN BEFORE DELIVERY AS A STEROID COVER)
     Route: 064

REACTIONS (2)
  - Neonatal respiratory distress syndrome [Recovered/Resolved]
  - Foetal exposure during pregnancy [Recovered/Resolved]
